FAERS Safety Report 9177333 (Version 1)
Quarter: 2013Q1

REPORT INFORMATION
  Report Type: Spontaneous
  Country: US (occurrence: None)
  Receive Date: 20130320
  Receipt Date: 20130320
  Transmission Date: 20140127
  Serious: No
  Sender: FDA-Public Use
  Company Number: None

PATIENT
  Age: 56 Year
  Sex: Female
  Weight: 60.9 kg

DRUGS (1)
  1. OXYBUTYNIN [Suspect]
     Route: 048
     Dates: start: 20110613, end: 20121204

REACTIONS (2)
  - Dry mouth [None]
  - Bronchospasm [None]
